FAERS Safety Report 24858331 (Version 1)
Quarter: 2025Q1

REPORT INFORMATION
  Report Type: Spontaneous
  Country: US (occurrence: US)
  Receive Date: 20250117
  Receipt Date: 20250117
  Transmission Date: 20250409
  Serious: No
  Sender: ABBVIE
  Company Number: US-ABBVIE-6087546

PATIENT
  Age: 50 Year
  Sex: Female

DRUGS (1)
  1. HUMIRA [Suspect]
     Active Substance: ADALIMUMAB
     Indication: Product used for unknown indication
     Route: 058
     Dates: start: 2019

REACTIONS (7)
  - Decreased appetite [Unknown]
  - Frequent bowel movements [Unknown]
  - Drug ineffective [Unknown]
  - Abdominal pain upper [Unknown]
  - Weight decreased [Unknown]
  - Drug specific antibody present [Not Recovered/Not Resolved]
  - Fatigue [Unknown]

NARRATIVE: CASE EVENT DATE: 20190101
